FAERS Safety Report 15488502 (Version 2)
Quarter: 2022Q4

REPORT INFORMATION
  Report Type: Spontaneous
  Country: FR (occurrence: FR)
  Receive Date: 20181011
  Receipt Date: 20221124
  Transmission Date: 20230113
  Serious: Yes (Death, Life-Threatening, Hospitalization, Other)
  Sender: FDA-Public Use
  Company Number: None

PATIENT
  Age: 34 Year
  Sex: Male

DRUGS (10)
  1. MORPHINE SULFATE [Suspect]
     Active Substance: MORPHINE SULFATE
     Indication: Abdominal pain
     Dosage: UNK
     Route: 042
     Dates: start: 20120625
  2. TRAMADOL [Suspect]
     Active Substance: TRAMADOL
     Indication: Abdominal pain
     Dosage: 100 MG, UNK
     Route: 065
     Dates: start: 20120625
  3. LOXAPINE [Suspect]
     Active Substance: LOXAPINE
     Indication: Bipolar disorder
     Dosage: 100 MG, UNK
     Route: 065
     Dates: start: 20120625
  4. LOXAPINE [Suspect]
     Active Substance: LOXAPINE
     Indication: Extrapyramidal disorder
  5. DIAZEPAM [Suspect]
     Active Substance: DIAZEPAM
     Indication: Bipolar disorder
     Dosage: 30 MG,QD
     Route: 065
  6. TROPATEPINE [Suspect]
     Active Substance: TROPATEPINE
     Indication: Bipolar disorder
     Dosage: 10 MG, DAILY
     Route: 065
     Dates: start: 20120605
  7. QUETIAPINE [Suspect]
     Active Substance: QUETIAPINE
     Indication: Bipolar disorder
     Dosage: 600 MG, DAILY
     Route: 048
     Dates: start: 20120605
  8. VALPROIC ACID [Suspect]
     Active Substance: VALPROIC ACID
     Indication: Bipolar disorder
     Dosage: 1000 MG, DAILY
     Route: 065
  9. LOXAPINE [Suspect]
     Active Substance: LOXAPINE
     Indication: Bipolar disorder
     Dosage: 375 MG, DAILY (275+100 MG ; AS REQUIRED)
     Route: 048
     Dates: start: 20120614
  10. LOXAPINE [Suspect]
     Active Substance: LOXAPINE
     Dosage: 275 MG, DAILY
     Route: 048
     Dates: start: 20120614

REACTIONS (12)
  - Septic shock [Fatal]
  - Candida infection [Fatal]
  - Gastric haemorrhage [Fatal]
  - Staphylococcal bacteraemia [Fatal]
  - Subileus [Fatal]
  - Multiple organ dysfunction syndrome [Fatal]
  - Intestinal ischaemia [Fatal]
  - Large intestine perforation [Fatal]
  - Cardiac arrest [Fatal]
  - Metabolic acidosis [Fatal]
  - Necrotising colitis [Fatal]
  - Pneumonia pseudomonal [Fatal]

NARRATIVE: CASE EVENT DATE: 20120625
